FAERS Safety Report 4336284-8 (Version None)
Quarter: 2004Q2

REPORT INFORMATION
  Report Type: 
  Country: None (occurrence: None)
  Receive Date: 20040409
  Receipt Date: 20040409
  Transmission Date: 20050107
  Serious: Yes (Death)
  Sender: FDA-Public Use
  Company Number: None

PATIENT
  Age: 47 Year
  Sex: Male

DRUGS (2)
  1. DURAGESIC [Suspect]
     Indication: BACK PAIN
     Dates: start: 20030101
  2. DURAGESIC [Suspect]
     Indication: SPINAL FRACTURE
     Dates: start: 20030101

REACTIONS (4)
  - ASPIRATION [None]
  - CARDIAC ARREST [None]
  - CONDITION AGGRAVATED [None]
  - PAIN [None]
